FAERS Safety Report 14873005 (Version 3)
Quarter: 2020Q3

REPORT INFORMATION
  Report Type: Spontaneous
  Country: US (occurrence: US)
  Receive Date: 20180510
  Receipt Date: 20200721
  Transmission Date: 20201102
  Serious: Yes (Hospitalization, Other)
  Sender: FDA-Public Use
  Company Number: US-009507513-1805USA001794

PATIENT
  Age: 60 Year
  Sex: Female

DRUGS (10)
  1. LORAZEPAM. [Concomitant]
     Active Substance: LORAZEPAM
     Dosage: UNK
  2. PRINIVIL [Suspect]
     Active Substance: LISINOPRIL
     Dosage: UNK
     Route: 048
  3. METHOTREXATE. [Interacting]
     Active Substance: METHOTREXATE
     Indication: B-CELL TYPE ACUTE LEUKAEMIA
     Dosage: HDMTX
     Route: 041
  4. CYTARABINE. [Concomitant]
     Active Substance: CYTARABINE
     Indication: B-CELL TYPE ACUTE LEUKAEMIA
     Dosage: 1500 MG/M2, INFUSED OVER 2 H EVERY 12 H FOR FOUR DOSES; CYCLICAL
     Route: 041
  5. METOPROLOL. [Concomitant]
     Active Substance: METOPROLOL
     Dosage: UNK
  6. AMIODARONE [Concomitant]
     Active Substance: AMIODARONE
     Dosage: UNK
  7. FOLINIC ACID [Concomitant]
     Active Substance: LEUCOVORIN
     Dosage: 25 MG, UNK
     Route: 048
  8. VORICONAZOLE. [Concomitant]
     Active Substance: VORICONAZOLE
     Dosage: UNK
  9. FOLINIC ACID [Concomitant]
     Active Substance: LEUCOVORIN
     Dosage: 150 MG, Q3H
     Route: 042
  10. METHOTREXATE. [Interacting]
     Active Substance: METHOTREXATE
     Dosage: 1000 MG/M2, INFUSED OVER 24 H; CYCLICAL
     Route: 041

REACTIONS (7)
  - Drug interaction [Recovered/Resolved]
  - Pancytopenia [Recovered/Resolved]
  - Acute kidney injury [Recovered/Resolved]
  - Mucosal inflammation [Recovered/Resolved]
  - Nephropathy [Recovered/Resolved]
  - Toxicity to various agents [Recovered/Resolved]
  - Drug clearance decreased [Recovered/Resolved]
